FAERS Safety Report 4668922-4 (Version None)
Quarter: 2005Q2

REPORT INFORMATION
  Report Type: 
  Country: None (occurrence: None)
  Receive Date: 20050523
  Receipt Date: 20041126
  Transmission Date: 20051028
  Serious: Yes (Hospitalization, Other)
  Sender: FDA-Public Use
  Company Number: PHBS2004CH16136

PATIENT
  Age: 81 Year
  Sex: Male

DRUGS (6)
  1. ZOMETA [Suspect]
     Indication: PROSTATE CANCER
     Dosage: 4 MG, QMO
     Route: 042
     Dates: start: 20020826, end: 20041028
  2. ASPIRIN [Concomitant]
     Dosage: 100 MG/D
     Route: 065
  3. TRAMADOL HCL [Concomitant]
     Indication: PAIN
     Dosage: 120 MG/D
     Route: 065
  4. DAFALGAN [Concomitant]
     Indication: PAIN
     Dosage: 500 MG, AS NECESSARY
     Route: 065
  5. ZOLADEX [Concomitant]
     Indication: PROSTATE CANCER
     Route: 065
  6. ARICEPT [Concomitant]
     Indication: DEMENTIA ALZHEIMER'S TYPE
     Dosage: 10 MG/D
     Route: 065

REACTIONS (3)
  - FISTULA [None]
  - GINGIVAL DISORDER [None]
  - OSTEONECROSIS [None]
